FAERS Safety Report 5162742-2 (Version None)
Quarter: 2006Q4

REPORT INFORMATION
  Report Type: 
  Country: None (occurrence: None)
  Receive Date: 20061121
  Receipt Date: 20061102
  Transmission Date: 20070319
  Serious: Yes (Death)
  Sender: FDA-Public Use
  Company Number: 061108-0001003

PATIENT
  Age: 16 Year
  Sex: 0

DRUGS (3)
  1. NEOPROFEN [Suspect]
     Indication: COMPLETED SUICIDE
  2. AMITRIPTYLINE HCL [Suspect]
     Indication: COMPLETED SUICIDE
     Dosage: INGESTION
  3. BUPROPION HCL [Suspect]
     Indication: COMPLETED SUICIDE
     Dosage: INGESTION

REACTIONS (1)
  - COMPLETED SUICIDE [None]
